FAERS Safety Report 5478447-4 (Version None)
Quarter: 2007Q4

REPORT INFORMATION
  Report Type: 
  Country: None (occurrence: None)
  Receive Date: 20071005
  Receipt Date: 20070925
  Transmission Date: 20080405
  Serious: Yes (Hospitalization)
  Sender: FDA-Public Use
  Company Number: FR-ROCHE-517359

PATIENT
  Age: 38 Year
  Sex: Male

DRUGS (8)
  1. ROCEPHIN [Suspect]
     Indication: DRUG USE FOR UNKNOWN INDICATION
     Route: 065
     Dates: end: 20070415
  2. ROCEPHIN [Suspect]
     Route: 065
  3. FRAXIPARINE [Suspect]
     Indication: DRUG USE FOR UNKNOWN INDICATION
     Route: 042
     Dates: start: 20070406, end: 20070415
  4. OMEPRAZOLE [Suspect]
     Indication: DRUG USE FOR UNKNOWN INDICATION
     Dosage: FORM REPORTED AS LYOPHILISED.
     Route: 042
     Dates: start: 20070406, end: 20070415
  5. OMEPRAZOLE [Suspect]
     Route: 042
  6. FLAGYL [Suspect]
     Indication: DRUG USE FOR UNKNOWN INDICATION
     Route: 042
     Dates: start: 20070406, end: 20070415
  7. FLAGYL [Suspect]
     Route: 042
  8. PERFALGAN [Concomitant]
     Indication: DRUG USE FOR UNKNOWN INDICATION
     Route: 042
     Dates: start: 20070406, end: 20070415

REACTIONS (1)
  - DERMATITIS EXFOLIATIVE [None]
